FAERS Safety Report 6381776-3 (Version None)
Quarter: 2009Q3

REPORT INFORMATION
  Report Type: 
  Country: None (occurrence: None)
  Receive Date: 20090930
  Receipt Date: 20071008
  Transmission Date: 20100115
  Serious: Yes (Other)
  Sender: FDA-Public Use
  Company Number: US-ASTRAZENECA-2006UW22445

PATIENT
  Age: 42 Year
  Sex: Female
  Weight: 138.8 kg

DRUGS (21)
  1. SEROQUEL [Suspect]
     Indication: SCHIZOPHRENIA
     Dosage: 100 MG, 300 MG
     Route: 048
     Dates: start: 19960101, end: 20020101
  2. SEROQUEL [Suspect]
     Route: 048
     Dates: start: 20000131
  3. METHADONE HYDROCHLORIDE [Concomitant]
     Dates: start: 20030101, end: 20060101
  4. LASIX [Concomitant]
     Indication: CARDIAC FAILURE CONGESTIVE
     Dosage: DOSE 40 MG TO 80 MG
     Route: 048
     Dates: start: 20010203
  5. DIGOXIN [Concomitant]
     Route: 048
     Dates: start: 20060101
  6. DILTIAZEM HCL [Concomitant]
     Route: 048
     Dates: start: 20060202
  7. PREVACID [Concomitant]
     Route: 048
     Dates: start: 20060202
  8. LORTAB [Concomitant]
     Indication: PAIN
     Dosage: STRENGTH 5/500 MG EVERY SIX HOURS AS REQUIRED.
     Route: 048
     Dates: start: 20060202
  9. FERROUS SULFATE TAB [Concomitant]
     Dosage: DOSE 325 TO 975 MG DAILY
     Route: 048
     Dates: start: 20060202
  10. GLIPIZIDE [Concomitant]
     Indication: DIABETES MELLITUS
     Route: 048
     Dates: start: 20060202
  11. LEVAQUIN [Concomitant]
     Indication: BRONCHITIS
     Dosage: DOSE 250MG TO 750MG DAILY
     Route: 048
     Dates: start: 20060202
  12. LISINOPRIL [Concomitant]
     Dosage: DOSE 2.5MG TO 20 MG DAILY
     Route: 048
     Dates: start: 20050127
  13. METOPROLOL SUCCINATE [Concomitant]
     Route: 048
     Dates: start: 20010203
  14. PAXIL [Concomitant]
     Dosage: DOSE 20 MG TO 25 MG DAILY
     Route: 048
     Dates: start: 20050127
  15. AMIODARONE HCL [Concomitant]
     Route: 048
     Dates: start: 20060202
  16. SINGULAIR [Concomitant]
     Route: 048
     Dates: start: 20060202
  17. OXYCODONE HCL [Concomitant]
     Dosage: DOSE 5 MG TO 15MG DAILY
     Route: 048
  18. NEURONTIN [Concomitant]
     Dosage: DOSE 100MG TO 900MG
     Route: 048
     Dates: start: 20050127
  19. CLARITIN [Concomitant]
     Route: 048
     Dates: start: 20060202
  20. PLAVIX [Concomitant]
     Route: 048
     Dates: start: 20060211
  21. ASPIRIN [Concomitant]
     Dates: start: 20060211

REACTIONS (7)
  - DIABETES MELLITUS [None]
  - DIABETIC KETOACIDOSIS [None]
  - DIABETIC NEUROPATHY [None]
  - RENAL DISORDER [None]
  - RENAL FAILURE ACUTE [None]
  - RENAL FAILURE CHRONIC [None]
  - TYPE 2 DIABETES MELLITUS [None]
